FAERS Safety Report 6676448-1 (Version None)
Quarter: 2010Q2

REPORT INFORMATION
  Report Type: 
  Country: None (occurrence: None)
  Receive Date: 20100412
  Receipt Date: 20100401
  Transmission Date: 20101027
  Serious: Yes (Disabling, Other)
  Sender: FDA-Public Use
  Company Number: PHHY2009IT51060

PATIENT
  Sex: Male

DRUGS (4)
  1. ZOMETA [Suspect]
     Indication: MULTIPLE MYELOMA
     Dosage: 4 MG, QMO
     Route: 042
     Dates: start: 20070101
  2. ZOMETA [Suspect]
     Dosage: 4 MG EVERY 15-20 DAYS
     Route: 042
  3. DEDRALEN [Concomitant]
     Route: 048
  4. COMBISARTAN [Concomitant]
     Route: 048

REACTIONS (2)
  - DEBRIDEMENT [None]
  - OSTEONECROSIS [None]
